FAERS Safety Report 15988143 (Version 2)
Quarter: 2019Q1

REPORT INFORMATION
  Report Type: Spontaneous
  Country: PL (occurrence: PL)
  Receive Date: 20190221
  Receipt Date: 20190325
  Transmission Date: 20190418
  Serious: Yes (Hospitalization, Other)
  Sender: FDA-Public Use
  Company Number: PL-BAXTER-2019BAX003354

PATIENT
  Age: 53 Year
  Sex: Male

DRUGS (8)
  1. ATROVENT [Suspect]
     Active Substance: IPRATROPIUM BROMIDE
     Indication: PRODUCT USED FOR UNKNOWN INDICATION
     Route: 065
  2. RAMIPRIL. [Suspect]
     Active Substance: RAMIPRIL
     Indication: PRODUCT USED FOR UNKNOWN INDICATION
     Route: 065
  3. FUROSEMIDE NORAMEDA 10 MG/ML ROZTWOR DO WSTRZYKIWAN/ DO INFUZJI [Suspect]
     Active Substance: FUROSEMIDE
     Indication: PRODUCT USED FOR UNKNOWN INDICATION
     Dosage: 160 MG, PER DAY
     Route: 065
  4. EPLERENONE. [Suspect]
     Active Substance: EPLERENONE
     Indication: PRODUCT USED FOR UNKNOWN INDICATION
     Route: 048
  5. IVABRADINE [Concomitant]
     Active Substance: IVABRADINE
     Indication: PRODUCT USED FOR UNKNOWN INDICATION
     Route: 065
  6. CARVEDILOL. [Suspect]
     Active Substance: CARVEDILOL
     Indication: CARDIAC FAILURE CONGESTIVE
     Route: 065
  7. CARVEDILOL. [Suspect]
     Active Substance: CARVEDILOL
     Route: 048
  8. RAMIPRIL. [Suspect]
     Active Substance: RAMIPRIL
     Route: 065

REACTIONS (6)
  - Cardiac failure chronic [Recovered/Resolved]
  - Weight increased [Unknown]
  - Cardiac failure chronic [Unknown]
  - Hypotension [Recovered/Resolved]
  - Oedema peripheral [Unknown]
  - Hepatomegaly [Unknown]
